FAERS Safety Report 6795938-4 (Version None)
Quarter: 2010Q2

REPORT INFORMATION
  Report Type: 
  Country: None (occurrence: None)
  Receive Date: 20100625
  Receipt Date: 20100617
  Transmission Date: 20101027
  Serious: Yes (Other)
  Sender: FDA-Public Use
  Company Number: B0661006A

PATIENT
  Sex: Male

DRUGS (6)
  1. AUGMENTIN '125' [Suspect]
     Route: 042
     Dates: end: 20100312
  2. TRACRIUM [Concomitant]
     Route: 065
     Dates: start: 20100312, end: 20100312
  3. SUFENTA PRESERVATIVE FREE [Concomitant]
     Route: 065
     Dates: start: 20100312, end: 20100312
  4. DIPRIVAN [Concomitant]
     Route: 065
     Dates: start: 20100312, end: 20100312
  5. KETAMINE [Concomitant]
     Route: 065
     Dates: start: 20100312, end: 20100312
  6. PERFALGAN [Concomitant]
     Route: 065
     Dates: start: 20100312, end: 20100312

REACTIONS (7)
  - ANAPHYLACTIC REACTION [None]
  - BRONCHOSPASM [None]
  - CYANOSIS [None]
  - ERYTHEMA [None]
  - HYPERSENSITIVITY [None]
  - HYPOTENSION [None]
  - TACHYCARDIA [None]
